FAERS Safety Report 16477322 (Version 1)
Quarter: 2019Q2

REPORT INFORMATION
  Report Type: Spontaneous
  Country: DE (occurrence: DE)
  Receive Date: 20190626
  Receipt Date: 20190626
  Transmission Date: 20190711
  Serious: Yes (Other)
  Sender: FDA-Public Use
  Company Number: DE-TEVA-2019-DE-1068580

PATIENT
  Sex: Male

DRUGS (1)
  1. ALLOPURINOL ABZ 300 MG TABLETTEN [Suspect]
     Active Substance: ALLOPURINOL
     Dosage: INTAKE FOR ABOUT 15 YEARS

REACTIONS (1)
  - Polyneuropathy [Not Recovered/Not Resolved]
